FAERS Safety Report 5334087-9 (Version None)
Quarter: 2007Q2

REPORT INFORMATION
  Report Type: 
  Country: None (occurrence: None)
  Receive Date: 20070524
  Receipt Date: 20070523
  Transmission Date: 20071010
  Serious: Yes (Other)
  Sender: FDA-Public Use
  Company Number: US-MERCK-0703USA05091

PATIENT
  Age: 59 Year
  Sex: Female
  Weight: 78 kg

DRUGS (14)
  1. JANUVIA [Suspect]
     Indication: DIABETES MELLITUS INSULIN-DEPENDENT
     Route: 048
     Dates: start: 20070101, end: 20070501
  2. GLUCOPHAGE [Concomitant]
     Route: 065
  3. LEVOXYL [Concomitant]
     Route: 065
  4. FOSAMAX [Concomitant]
     Route: 065
  5. IMDUR [Concomitant]
     Route: 065
  6. ZETIA [Concomitant]
     Route: 065
  7. NORVASC [Concomitant]
     Route: 065
  8. PLAVIX [Concomitant]
     Route: 065
  9. TRICOR [Concomitant]
     Route: 065
  10. LIPITOR [Concomitant]
     Route: 065
  11. SPIRONOLACTONE [Concomitant]
     Route: 065
  12. POTASSIUM CHLORIDE [Concomitant]
     Route: 065
  13. PREVACID [Concomitant]
     Route: 065
  14. ASPIRIN [Concomitant]
     Route: 065

REACTIONS (5)
  - FACE OEDEMA [None]
  - MALAISE [None]
  - NAUSEA [None]
  - OEDEMA PERIPHERAL [None]
  - OFF LABEL USE [None]
